FAERS Safety Report 6945102-0 (Version None)
Quarter: 2010Q3

REPORT INFORMATION
  Report Type: 
  Country: None (occurrence: None)
  Receive Date: 20100827
  Receipt Date: 20090825
  Transmission Date: 20110219
  Serious: No
  Sender: FDA-Public Use
  Company Number: A0804089A

PATIENT
  Sex: Female

DRUGS (3)
  1. BECONASE [Suspect]
     Dosage: 2SPR PER DAY
     Route: 045
     Dates: start: 20010101, end: 20080801
  2. ASCORBIC ACID [Concomitant]
  3. DECONGESTANT [Concomitant]

REACTIONS (4)
  - CHEST PAIN [None]
  - COUGH [None]
  - SINUS DISORDER [None]
  - SNEEZING [None]
